FAERS Safety Report 5719938-8 (Version None)
Quarter: 2008Q2

REPORT INFORMATION
  Report Type: 
  Country: None (occurrence: None)
  Receive Date: 20080423
  Receipt Date: 20070329
  Transmission Date: 20081010
  Serious: Yes (Hospitalization)
  Sender: FDA-Public Use
  Company Number: 235095

PATIENT
  Age: 46 Year
  Sex: Female
  Weight: 60.8 kg

DRUGS (4)
  1. AVASTIN [Suspect]
     Indication: BREAST CANCER
     Dosage: 15 MG/KG, Q3W, INTRAVENOUS
     Route: 042
     Dates: start: 20050814
  2. TAXOTERE [Concomitant]
  3. ATIVAN [Concomitant]
  4. VICODIN [Concomitant]

REACTIONS (1)
  - EPISTAXIS [None]
